FAERS Safety Report 6907317-7 (Version None)
Quarter: 2010Q3

REPORT INFORMATION
  Report Type: 
  Country: None (occurrence: None)
  Receive Date: 20100730
  Receipt Date: 20090313
  Transmission Date: 20110219
  Serious: Yes (Other)
  Sender: FDA-Public Use
  Company Number: 009

PATIENT
  Age: 73 Year
  Sex: Male
  Weight: 104.3273 kg

DRUGS (1)
  1. DR. FRANK'S JOINT + MUSCLE PAIN RELIEF [Suspect]
     Indication: ARTHRALGIA
     Dosage: 4 SPRAYS 4 XS/DAY

REACTIONS (1)
  - RENAL DISORDER [None]
